FAERS Safety Report 7277231-9 (Version None)
Quarter: 2011Q1

REPORT INFORMATION
  Report Type: 
  Country: None (occurrence: None)
  Receive Date: 20110113
  Receipt Date: 20110113
  Transmission Date: 20110831
  Serious: Yes (Other)
  Sender: FDA-Public Use
  Company Number: None

PATIENT
  Age: 49 Year
  Sex: Female
  Weight: 69.8539 kg

DRUGS (2)
  1. TRIAD ALCOHOL SWABS [Suspect]
     Indication: MULTIPLE SCLEROSIS
     Dates: start: 20110101, end: 20110101
  2. TRIAD ALCOHOL SWABS [Suspect]
     Indication: MULTIPLE SCLEROSIS
     Dates: start: 20110112, end: 20110112

REACTIONS (2)
  - PRODUCT QUALITY ISSUE [None]
  - INJECTION SITE INFECTION [None]
